FAERS Safety Report 20720940 (Version 2)
Quarter: 2022Q2

REPORT INFORMATION
  Report Type: Spontaneous
  Country: US (occurrence: US)
  Receive Date: 20220418
  Receipt Date: 20220419
  Transmission Date: 20220720
  Serious: No
  Sender: FDA-Public Use
  Company Number: US-NXDC-2022GLE00013

PATIENT
  Age: 58 Year
  Sex: Female
  Weight: 76.82 kg

DRUGS (4)
  1. GLEOLAN [Suspect]
     Active Substance: AMINOLEVULINIC ACID HYDROCHLORIDE
     Indication: Photodynamic diagnostic procedure
     Dates: start: 20220323
  2. TENORMIN [Concomitant]
     Active Substance: ATENOLOL
     Indication: Premedication
     Dosage: 50MG TABLET
  3. PERIDEX [Concomitant]
     Active Substance: CHLORHEXIDINE GLUCONATE
     Indication: Premedication
     Dosage: 0.12% ORAL RINSE 15 ML
     Route: 050
  4. Lactated Ringer infusion [Concomitant]
     Indication: Premedication

REACTIONS (2)
  - Drug ineffective [Unknown]
  - Inappropriate schedule of product administration [Unknown]

NARRATIVE: CASE EVENT DATE: 20220323
